FAERS Safety Report 8464288-2 (Version None)
Quarter: 2012Q2

REPORT INFORMATION
  Report Type: 
  Country: None (occurrence: None)
  Receive Date: 20120625
  Receipt Date: 20120619
  Transmission Date: 20120825
  Serious: No
  Sender: FDA-Public Use
  Company Number: US-B.I. PHARMACEUTICALS,INC./RIDGEFIELD-2012-BP-14052BP

PATIENT
  Sex: Male

DRUGS (4)
  1. TYLENOL PM [Concomitant]
     Indication: NECK PAIN
     Dates: start: 20100101
  2. DIOVAN [Concomitant]
     Indication: HYPERTENSION
     Dates: start: 20080101
  3. MULTAQ [Concomitant]
     Indication: ATRIAL FIBRILLATION
     Dates: start: 20100101
  4. PRADAXA [Suspect]
     Indication: ATRIAL FIBRILLATION
     Dosage: 300 MG
     Route: 048
     Dates: start: 20120522

REACTIONS (5)
  - CONTUSION [None]
  - ASTHENIA [None]
  - HEART RATE DECREASED [None]
  - LETHARGY [None]
  - DIZZINESS [None]
